FAERS Safety Report 10203505 (Version 1)
Quarter: 2014Q2

REPORT INFORMATION
  Report Type: Spontaneous
  Country: FR (occurrence: FR)
  Receive Date: 20140529
  Receipt Date: 20140529
  Transmission Date: 20141212
  Serious: Yes (Hospitalization)
  Sender: FDA-Public Use
  Company Number: FR-MYLANLABS-2014S1011463

PATIENT
  Sex: Female

DRUGS (1)
  1. PAROXETINE [Suspect]
     Indication: PRODUCT USED FOR UNKNOWN INDICATION
     Dates: start: 20140514

REACTIONS (8)
  - Intentional overdose [Unknown]
  - Headache [Unknown]
  - Pyrexia [Unknown]
  - Disorientation [Unknown]
  - Amnesia [Unknown]
  - Hallucination [Unknown]
  - Mydriasis [Unknown]
  - Muscle contractions involuntary [Unknown]
